FAERS Safety Report 9328504 (Version 1)
Quarter: 2013Q2

REPORT INFORMATION
  Report Type: Spontaneous
  Country: US (occurrence: US)
  Receive Date: 20130604
  Receipt Date: 20130604
  Transmission Date: 20140414
  Serious: Yes (Other)
  Sender: FDA-Public Use
  Company Number: US-SANOFI-AVENTIS-2012SA019471

PATIENT
  Age: 71 Year
  Sex: Female
  Weight: 61.8 kg

DRUGS (7)
  1. LANTUS [Suspect]
     Indication: TYPE 2 DIABETES MELLITUS
     Dosage: DOSE:5 UNIT(S)
     Route: 058
     Dates: start: 200903
  2. LANTUS [Suspect]
     Indication: TYPE 2 DIABETES MELLITUS
     Dosage: DOSE:6 UNIT(S)
     Route: 058
  3. LANTUS [Suspect]
     Indication: TYPE 2 DIABETES MELLITUS
     Dosage: DOSE:6 UNIT(S)
     Route: 058
     Dates: start: 20110905, end: 20120306
  4. HYDROCHLOROTHIAZIDE [Concomitant]
     Dates: start: 2009
  5. PRAVASTATIN [Concomitant]
     Dates: start: 2009
  6. ALLERGY MEDICATION [Concomitant]
  7. PANCRELIPASE [Concomitant]
     Dates: start: 2009

REACTIONS (3)
  - Influenza [Unknown]
  - Blood glucose increased [Unknown]
  - Cataract [Unknown]
